FAERS Safety Report 6882108-4 (Version None)
Quarter: 2010Q3

REPORT INFORMATION
  Report Type: 
  Country: None (occurrence: None)
  Receive Date: 20100729
  Receipt Date: 20100721
  Transmission Date: 20110219
  Serious: Yes (Other)
  Sender: FDA-Public Use
  Company Number: DE-ABBOTT-10P-062-0659390-00

PATIENT
  Sex: Male
  Weight: 91 kg

DRUGS (2)
  1. KALETRA [Suspect]
     Indication: HIV INFECTION
     Dosage: 2X2
     Route: 048
     Dates: start: 20090717
  2. TRUVADA [Concomitant]
     Indication: PRODUCT USED FOR UNKNOWN INDICATION
     Dosage: 1X1
     Route: 048
     Dates: start: 20090717

REACTIONS (2)
  - HEPATIC CIRRHOSIS [None]
  - HEPATIC ENZYME INCREASED [None]
